FAERS Safety Report 6783383-7 (Version None)
Quarter: 2010Q2

REPORT INFORMATION
  Report Type: 
  Country: None (occurrence: None)
  Receive Date: 20100622
  Receipt Date: 20100608
  Transmission Date: 20101027
  Serious: Yes (Hospitalization, Other)
  Sender: FDA-Public Use
  Company Number: PHHY2010FI36758

PATIENT
  Age: 55 Year
  Sex: Male

DRUGS (2)
  1. TASIGNA [Suspect]
     Indication: CHRONIC MYELOID LEUKAEMIA
     Dosage: 400 MG, BID
     Route: 048
  2. TASIGNA [Suspect]
     Dosage: 400 MG, BID
     Route: 048
     Dates: start: 20100602

REACTIONS (3)
  - C-REACTIVE PROTEIN INCREASED [None]
  - FEELING ABNORMAL [None]
  - HEADACHE [None]
